FAERS Safety Report 5417342-3 (Version None)
Quarter: 2007Q3

REPORT INFORMATION
  Report Type: 
  Country: None (occurrence: None)
  Receive Date: 20070816
  Receipt Date: 20070813
  Transmission Date: 20080115
  Serious: Yes (Hospitalization)
  Sender: FDA-Public Use
  Company Number: JP-BAXTER-2007BH003910

PATIENT
  Age: 13 Month
  Sex: Male
  Weight: 9 kg

DRUGS (8)
  1. RECOMBINATE [Suspect]
     Indication: FACTOR VIII DEFICIENCY
     Route: 042
     Dates: start: 20060926
  2. RECOMBINATE [Suspect]
     Route: 042
     Dates: start: 20060926
  3. RECOMBINATE [Suspect]
     Route: 042
     Dates: start: 20061113, end: 20061113
  4. RECOMBINATE [Suspect]
     Route: 042
     Dates: end: 20070402
  5. ADVATE [Suspect]
     Indication: FACTOR VIII DEFICIENCY
     Route: 042
     Dates: start: 20070405, end: 20070412
  6. ADVATE [Suspect]
     Route: 042
     Dates: start: 20070416, end: 20070416
  7. ADVATE [Suspect]
     Route: 042
     Dates: start: 20070501
  8. ADVATE [Suspect]
     Route: 042
     Dates: start: 20070608, end: 20070608

REACTIONS (1)
  - FACTOR VIII INHIBITION [None]
